FAERS Safety Report 4569931-6 (Version None)
Quarter: 2005Q1

REPORT INFORMATION
  Report Type: 
  Country: None (occurrence: None)
  Receive Date: 20050204
  Receipt Date: 20050125
  Transmission Date: 20050727
  Serious: Yes (Hospitalization)
  Sender: FDA-Public Use
  Company Number: FR-JNJFOC-20050105891

PATIENT
  Age: 9 Year
  Sex: Female

DRUGS (2)
  1. REMICADE [Suspect]
     Dosage: 6TH AND 7TH INFUSION AT 10MG/KG
     Route: 042
  2. REMICADE [Suspect]
     Indication: UVEITIS
     Dosage: FIRST 5 DOSES AT 5MG/KG
     Route: 042

REACTIONS (3)
  - LEISHMANIASIS [None]
  - PANCYTOPENIA [None]
  - PYREXIA [None]
